FAERS Safety Report 13522437 (Version 2)
Quarter: 2017Q3

REPORT INFORMATION
  Report Type: Spontaneous
  Country: US (occurrence: US)
  Receive Date: 20170508
  Receipt Date: 20170718
  Transmission Date: 20171127
  Serious: No
  Sender: FDA-Public Use
  Company Number: US-LUNDBECK-DKLU2029993

PATIENT
  Age: 33 Year
  Sex: Female

DRUGS (4)
  1. NORTHERA [Suspect]
     Active Substance: DROXIDOPA
     Route: 065
  2. NORTHERA [Suspect]
     Active Substance: DROXIDOPA
     Route: 065
     Dates: start: 201704
  3. NORTHERA [Suspect]
     Active Substance: DROXIDOPA
     Indication: PRODUCT USED FOR UNKNOWN INDICATION
     Dosage: SCHEDULE A AND TITRATING
     Route: 065
     Dates: start: 20170417
  4. NORTHERA [Suspect]
     Active Substance: DROXIDOPA
     Route: 065
     Dates: start: 201704

REACTIONS (11)
  - Hypoaesthesia [Unknown]
  - Syncope [Unknown]
  - Hyperhidrosis [Unknown]
  - Nausea [Unknown]
  - Migraine [Unknown]
  - Pain in extremity [Unknown]
  - Paraesthesia [Unknown]
  - Vomiting [Unknown]
  - Dizziness [Unknown]
  - Diarrhoea [Unknown]
  - Hypotension [Unknown]

NARRATIVE: CASE EVENT DATE: 20170420
